FAERS Safety Report 16717826 (Version 2)
Quarter: 2020Q1

REPORT INFORMATION
  Report Type: Report from Study
  Country: None (occurrence: NO)
  Receive Date: 20190819
  Receipt Date: 20200303
  Transmission Date: 20200409
  Serious: Yes (Death, Hospitalization)
  Sender: FDA-Public Use
  Company Number: NO-ABBVIE-19P-122-2743040-00

PATIENT
  Age: 66 Year
  Sex: Female

DRUGS (11)
  1. ZOMETA [Concomitant]
     Active Substance: ZOLEDRONIC ACID
     Indication: PRODUCT USED FOR UNKNOWN INDICATION
     Route: 042
     Dates: start: 201701
  2. VENETOCLAX. [Suspect]
     Active Substance: VENETOCLAX
     Indication: PLASMA CELL MYELOMA
     Dosage: ON DAYS 1-21 OF EACH 28-DAY CYCLE, MOST RECENT DOSE PRIOR TO EVENT ONSET ON 09/JAN/2019
     Route: 048
     Dates: start: 20181114
  3. LONQUEX [Concomitant]
     Active Substance: LIPEGFILGRASTIM
     Indication: NEUTROPENIA
     Route: 058
     Dates: start: 20181227
  4. LOCOID [Concomitant]
     Active Substance: HYDROCORTISONE BUTYRATE
     Indication: RASH
     Route: 065
     Dates: start: 20190109
  5. NEUPOGEN [Concomitant]
     Active Substance: FILGRASTIM
     Indication: CYTOPENIA
     Route: 058
     Dates: start: 20181227
  6. SOMAC [Concomitant]
     Active Substance: PANTOPRAZOLE SODIUM
     Indication: PRODUCT USED FOR UNKNOWN INDICATION
     Route: 048
     Dates: start: 20181209
  7. CYKLOKAPRON [Concomitant]
     Active Substance: TRANEXAMIC ACID
     Indication: HAEMORRHAGE
     Route: 048
     Dates: start: 20190123
  8. LEVAXIN [Concomitant]
     Active Substance: LEVOTHYROXINE SODIUM
     Indication: HYPOTHYROIDISM
     Route: 048
  9. ZOFRAN [Concomitant]
     Active Substance: ONDANSETRON HYDROCHLORIDE
     Indication: PROPHYLAXIS OF NAUSEA AND VOMITING
     Route: 048
     Dates: start: 20181114
  10. EURAX [Concomitant]
     Active Substance: CROTAMITON
     Indication: PRURITUS
     Route: 065
     Dates: start: 20190109
  11. COBIMETINIB. [Suspect]
     Active Substance: COBIMETINIB
     Indication: PLASMA CELL MYELOMA
     Dosage: ON DAYS 1-21 OF EACH 28-DAY CYCLE, MOST RECENT DOSE PRIOR TO EVENT ONSET ON 29/JAN/2019
     Route: 048
     Dates: start: 20181114

REACTIONS (2)
  - Pneumonia [Fatal]
  - Pyrexia [Unknown]

NARRATIVE: CASE EVENT DATE: 20190204
